FAERS Safety Report 13903008 (Version 1)
Quarter: 2017Q3

REPORT INFORMATION
  Report Type: Spontaneous
  Country: US (occurrence: US)
  Receive Date: 20170824
  Receipt Date: 20170824
  Transmission Date: 20171127
  Serious: Yes (Hospitalization, Other)
  Sender: FDA-Public Use
  Company Number: PHHY2017US123084

PATIENT

DRUGS (1)
  1. CITALOPRAM [Suspect]
     Active Substance: CITALOPRAM HYDROBROMIDE
     Indication: DEPRESSIVE SYMPTOM
     Dosage: 10 MG, QD
     Route: 065

REACTIONS (6)
  - Fatigue [Unknown]
  - Vomiting [Unknown]
  - Carcinoid syndrome [Unknown]
  - Nausea [Unknown]
  - Diarrhoea [Unknown]
  - Depressed mood [Unknown]
